FAERS Safety Report 8117072-3 (Version None)
Quarter: 2012Q1

REPORT INFORMATION
  Report Type: 
  Country: None (occurrence: None)
  Receive Date: 20120206
  Receipt Date: 20120201
  Transmission Date: 20120608
  Serious: Yes (Hospitalization, Other)
  Sender: FDA-Public Use
  Company Number: NO-PFIZER INC-2012027394

PATIENT
  Age: 33 Year
  Sex: Male

DRUGS (1)
  1. ALPRAZOLAM [Suspect]
     Indication: PANIC ATTACK
     Dosage: SEVERAL TABLETS PER WEEK
     Route: 048
     Dates: start: 20090101

REACTIONS (2)
  - NEUTROPENIA [None]
  - SEPSIS [None]
